FAERS Safety Report 5564376-4 (Version None)
Quarter: 2007Q4

REPORT INFORMATION
  Report Type: 
  Country: None (occurrence: None)
  Receive Date: 20071218
  Receipt Date: 20071210
  Transmission Date: 20080405
  Serious: Yes (Other)
  Sender: FDA-Public Use
  Company Number: FR-BRISTOL-MYERS SQUIBB COMPANY-14015747

PATIENT

DRUGS (2)
  1. CYCLOPHOSPHAMIDE [Suspect]
     Route: 042
     Dates: start: 20071120, end: 20071120
  2. UROMITEXAN [Suspect]
     Route: 042
     Dates: start: 20071120, end: 20071120

REACTIONS (1)
  - HYPERTHERMIA [None]
